FAERS Safety Report 9636027 (Version 2)
Quarter: 2013Q4

REPORT INFORMATION
  Report Type: Spontaneous
  Country: GB (occurrence: GB)
  Receive Date: 20131021
  Receipt Date: 20131021
  Transmission Date: 20140711
  Serious: Yes (Other)
  Sender: FDA-Public Use
  Company Number: GB-WATSON-2013-17964

PATIENT
  Age: 89 Year
  Sex: Female

DRUGS (4)
  1. DESMOPRESSIN (UNKNOWN) [Suspect]
     Indication: PRODUCT USED FOR UNKNOWN INDICATION
     Dosage: 200 MICROGRAMS, ADMINISTERED AT NIGHT
     Route: 048
     Dates: start: 20130906, end: 20130911
  2. DESMOPRESSIN (UNKNOWN) [Interacting]
     Dosage: 800 MICROGRAMS
     Route: 065
  3. MIRTAZAPINE (UNKNOWN) [Interacting]
     Indication: PRODUCT USED FOR UNKNOWN INDICATION
     Dosage: 30 MG, QPM
     Route: 048
  4. LANSOPRAZOLE [Concomitant]
     Indication: PRODUCT USED FOR UNKNOWN INDICATION
     Dosage: 30 MG, QAM
     Route: 048

REACTIONS (2)
  - Hyponatraemia [Recovered/Resolved]
  - Labelled drug-drug interaction medication error [Recovered/Resolved]
